FAERS Safety Report 15505772 (Version 2)
Quarter: 2019Q1

REPORT INFORMATION
  Report Type: Spontaneous
  Country: US (occurrence: US)
  Receive Date: 20181016
  Receipt Date: 20190116
  Transmission Date: 20190417
  Serious: Yes (Hospitalization, Other)
  Sender: FDA-Public Use
  Company Number: US-ELI_LILLY_AND_COMPANY-US201810004649

PATIENT
  Sex: Male

DRUGS (1)
  1. CYRAMZA [Suspect]
     Active Substance: RAMUCIRUMAB
     Indication: LUNG NEOPLASM MALIGNANT
     Dosage: 300 MG, CYCLICAL
     Route: 042
     Dates: start: 20170426, end: 201812

REACTIONS (15)
  - Depression [Unknown]
  - Cachexia [Unknown]
  - Fatigue [Unknown]
  - Gastritis [Unknown]
  - Malignant neoplasm progression [Unknown]
  - White blood cell count increased [Unknown]
  - Ileus [Unknown]
  - Stoma site pain [Unknown]
  - Haemoglobin decreased [Unknown]
  - Weight decreased [Unknown]
  - Intestinal obstruction [Unknown]
  - Constipation [Unknown]
  - Anxiety [Unknown]
  - Peripheral swelling [Unknown]
  - Tenderness [Unknown]
